FAERS Safety Report 9325976 (Version 1)
Quarter: 2013Q2

REPORT INFORMATION
  Report Type: Spontaneous
  Country: US (occurrence: None)
  Receive Date: 20130603
  Receipt Date: 20130603
  Transmission Date: 20140414
  Serious: Yes (Life-Threatening)
  Sender: FDA-Public Use
  Company Number: None

PATIENT
  Age: 76 Year
  Sex: Female
  Weight: 116.12 kg

DRUGS (2)
  1. GLIPIZIDE [Suspect]
     Indication: DIABETES MELLITUS
     Dosage: 2 IN AM
     Dates: start: 20130406, end: 20130510
  2. GLYBURIDE [Suspect]
     Indication: DIABETES MELLITUS
     Dosage: 2 AM 2 PM
     Route: 048
     Dates: start: 20130510

REACTIONS (1)
  - Diarrhoea [None]
